FAERS Safety Report 8021733-4 (Version None)
Quarter: 2012Q1

REPORT INFORMATION
  Report Type: 
  Country: None (occurrence: None)
  Receive Date: 20120104
  Receipt Date: 20120103
  Transmission Date: 20120608
  Serious: Yes (Death)
  Sender: FDA-Public Use
  Company Number: PHHY2010AU092666

PATIENT
  Sex: Female

DRUGS (4)
  1. VALPROAT ^AZUPHARMA^ [Concomitant]
     Indication: BIPOLAR DISORDER
     Dosage: 280 MG, TWICE DAILY
     Route: 048
  2. ZOLEDRONOC ACID [Suspect]
     Indication: OSTEOPOROSIS
     Dosage: 5 MG
     Route: 042
     Dates: start: 20091202
  3. SEROQUEL [Concomitant]
     Indication: DEMENTIA
     Dosage: 12.5MG IN THE MORNING, 37.5 MG IN THE EVENING
     Route: 048
  4. FLUDROCORTISONE ACETATE [Concomitant]
     Indication: HYPOTENSION
     Dosage: 0.1 MG DAILY
     Route: 048

REACTIONS (1)
  - DEATH [None]
